FAERS Safety Report 19071821 (Version 2)
Quarter: 2021Q2

REPORT INFORMATION
  Report Type: Spontaneous
  Country: US (occurrence: US)
  Receive Date: 20210330
  Receipt Date: 20210402
  Transmission Date: 20210717
  Serious: Yes (Disabling, Other)
  Sender: FDA-Public Use
  Company Number: US-UCBSA-2021013538

PATIENT
  Age: 56 Year
  Sex: Female

DRUGS (1)
  1. BRIVIACT [Suspect]
     Active Substance: BRIVARACETAM
     Indication: SEIZURE
     Dosage: UNK

REACTIONS (2)
  - Amnesia [Not Recovered/Not Resolved]
  - Blindness [Not Recovered/Not Resolved]

NARRATIVE: CASE EVENT DATE: 20210318
